FAERS Safety Report 11984985 (Version 2)
Quarter: 2016Q1

REPORT INFORMATION
  Report Type: Spontaneous
  Country: US (occurrence: US)
  Receive Date: 20160201
  Receipt Date: 20160302
  Transmission Date: 20160526
  Serious: Yes (Other)
  Sender: FDA-Public Use
  Company Number: US-BAYER-2015-149617

PATIENT
  Age: 70 Year
  Sex: Male

DRUGS (2)
  1. COPPERTONE ULTRAGUARD SPF 30 [Suspect]
     Active Substance: AVOBENZONE\HOMOSALATE\OCTISALATE\OCTOCRYLENE
     Dosage: 1 DF, PRN
     Route: 061
     Dates: start: 2013
  2. COPPERTONE SPORT SPF 30 [Suspect]
     Active Substance: AVOBENZONE\HOMOSALATE\OCTISALATE\OCTOCRYLENE
     Dosage: 1 DF, PRN
     Route: 061
     Dates: start: 2013, end: 2013

REACTIONS (4)
  - Skin cancer [None]
  - Rash erythematous [Recovered/Resolved]
  - Product expiration date issue [Unknown]
  - Photosensitivity reaction [Unknown]

NARRATIVE: CASE EVENT DATE: 2013
